FAERS Safety Report 7990153 (Version 3)
Quarter: 2013Q2

REPORT INFORMATION
  Report Type: Report from Study
  Country: BR (occurrence: BR)
  Receive Date: 20110614
  Receipt Date: 20130614
  Transmission Date: 20140414
  Serious: Yes (Death, Hospitalization, Other)
  Sender: FDA-Public Use
  Company Number: PHHY2011BR51492

PATIENT
  Sex: Male

DRUGS (1)
  1. DIOVAN HCT [Suspect]
     Indication: HYPERTENSION
     Dosage: 2 OR 3 DF, DAILY (160 MG VALS AND 12.5 MG HCTZ)
     Route: 048

REACTIONS (3)
  - Pulmonary embolism [Fatal]
  - Femur fracture [Unknown]
  - Fall [Unknown]
